FAERS Safety Report 10608117 (Version 2)
Quarter: 2014Q4

REPORT INFORMATION
  Report Type: Spontaneous
  Country: CH (occurrence: CH)
  Receive Date: 20141125
  Receipt Date: 20141201
  Transmission Date: 20150529
  Serious: Yes (Hospitalization, Other)
  Sender: FDA-Public Use
  Company Number: CH-009507513-1411CHE009938

PATIENT
  Age: 20 Year
  Sex: Male

DRUGS (7)
  1. MORPHINE HYDROCHLORIDE [Concomitant]
     Active Substance: MORPHINE HYDROCHLORIDE
  2. TRAMADOL HYDROCHLORIDE. [Suspect]
     Active Substance: TRAMADOL HYDROCHLORIDE
     Dosage: 500 MG, ONCE
     Route: 048
     Dates: start: 20121204, end: 20121204
  3. ACETAMINOPHEN. [Concomitant]
     Active Substance: ACETAMINOPHEN
  4. MORPHINE SULFATE. [Concomitant]
     Active Substance: MORPHINE SULFATE
  5. CYCLOSPORINE. [Concomitant]
     Active Substance: CYCLOSPORINE
  6. TRYPTIZOL [Suspect]
     Active Substance: AMITRIPTYLINE HYDROCHLORIDE
     Dosage: 30 DF, ONCE
     Route: 048
     Dates: start: 20121204, end: 20121204
  7. CHLORHEXIDINE HYDROCHLORIDE [Concomitant]
     Active Substance: CHLORHEXIDINE HYDROCHLORIDE

REACTIONS (4)
  - Blood pressure decreased [Unknown]
  - Toxicity to various agents [Unknown]
  - Intentional overdose [Unknown]
  - Suicide attempt [Recovered/Resolved]

NARRATIVE: CASE EVENT DATE: 20121204
